FAERS Safety Report 15289245 (Version 2)
Quarter: 2019Q1

REPORT INFORMATION
  Report Type: Report from Study
  Country: None (occurrence: DE)
  Receive Date: 20180817
  Receipt Date: 20190118
  Transmission Date: 20190417
  Serious: Yes (Other)
  Sender: FDA-Public Use
  Company Number: DE-ABBVIE-18S-062-2449239-00

PATIENT
  Age: 79 Year
  Sex: Male

DRUGS (17)
  1. STALEVO [Concomitant]
     Active Substance: CARBIDOPA\ENTACAPONE\LEVODOPA
     Indication: PRODUCT USED FOR UNKNOWN INDICATION
     Dosage: 100^/25/200 MG
     Route: 065
  2. MACROGOL SACHETS [Concomitant]
     Indication: PRODUCT USED FOR UNKNOWN INDICATION
     Route: 065
  3. DUODOPA [Suspect]
     Active Substance: CARBIDOPA\LEVODOPA
     Dosage: MD 8.0 ML; CRD 2.3 ML/HR; ED 0.8 ML
     Route: 050
     Dates: start: 201808, end: 2018
  4. MIDODRINE [Concomitant]
     Active Substance: MIDODRINE
     Indication: ORTHOSTATIC HYPOTENSION
     Route: 065
  5. STALEVO [Concomitant]
     Active Substance: CARBIDOPA\ENTACAPONE\LEVODOPA
     Indication: PRODUCT USED FOR UNKNOWN INDICATION
     Dosage: 75/18.75/200 MG
     Route: 065
  6. LEVODOPA DEPOT [Concomitant]
     Indication: PRODUCT USED FOR UNKNOWN INDICATION
     Dosage: 100/25 MG
     Route: 065
  7. NEUPRO [Concomitant]
     Active Substance: ROTIGOTINE
     Indication: PRODUCT USED FOR UNKNOWN INDICATION
     Dosage: 8 MG/24 HR
     Route: 062
  8. APIXABAN [Concomitant]
     Active Substance: APIXABAN
     Indication: ATRIAL FIBRILLATION
     Route: 065
     Dates: start: 2016
  9. VITAMIN B12 [Concomitant]
     Active Substance: CYANOCOBALAMIN
     Indication: VITAMIN B12 DEFICIENCY
     Route: 058
  10. SULIFONARIN NOS [Concomitant]
     Indication: PRODUCT USED FOR UNKNOWN INDICATION
     Route: 065
  11. GUTRON DROPS [Concomitant]
     Indication: PRODUCT USED FOR UNKNOWN INDICATION
     Route: 065
  12. QUETIAPINE. [Concomitant]
     Active Substance: QUETIAPINE
     Indication: PRODUCT USED FOR UNKNOWN INDICATION
     Route: 065
  13. TAMSULOSIN [Concomitant]
     Active Substance: TAMSULOSIN
     Indication: PRODUCT USED FOR UNKNOWN INDICATION
     Route: 065
     Dates: start: 201807, end: 2018
  14. SOLIFENACIN [Concomitant]
     Active Substance: SOLIFENACIN
     Indication: URGE INCONTINENCE
     Route: 065
  15. RIVASTIGMIN [Concomitant]
     Active Substance: RIVASTIGMINE
     Indication: PRODUCT USED FOR UNKNOWN INDICATION
     Dosage: 9.5 MG/24 HR
     Route: 062
  16. DUODOPA [Suspect]
     Active Substance: CARBIDOPA\LEVODOPA
     Indication: PARKINSON^S DISEASE
     Dosage: MD 8 ML; CRD 2.5 ML/HR; ED 0.8 ML
     Route: 050
     Dates: start: 20180719, end: 201808
  17. MADOPAR LT [Concomitant]
     Active Substance: BENSERAZIDE HYDROCHLORIDE\LEVODOPA
     Indication: PRODUCT USED FOR UNKNOWN INDICATION
     Dosage: 100 MG /25 MG AS NEEDED UP TO 4 TIMES DAILY
     Route: 065

REACTIONS (26)
  - Skin abrasion [Recovering/Resolving]
  - Leukopenia [Unknown]
  - Thrombocytopenia [Unknown]
  - Treatment noncompliance [Unknown]
  - Pleural effusion [Unknown]
  - Disorientation [Not Recovered/Not Resolved]
  - Haematoma [Unknown]
  - Blood count abnormal [Recovering/Resolving]
  - Tricuspid valve incompetence [Unknown]
  - Diastolic dysfunction [Unknown]
  - Thoracic vertebral fracture [Unknown]
  - Syncope [Recovering/Resolving]
  - Hyperkinesia [Unknown]
  - Device dislocation [Unknown]
  - Fall [Not Recovered/Not Resolved]
  - Cervical vertebral fracture [Unknown]
  - Cognitive disorder [Unknown]
  - Time perception altered [Unknown]
  - Restlessness [Not Recovered/Not Resolved]
  - Mitral valve incompetence [Unknown]
  - Haematoma [Unknown]
  - Skin laceration [Recovering/Resolving]
  - Memory impairment [Unknown]
  - Intentional medical device removal by patient [Unknown]
  - Fall [Unknown]
  - Hypotension [Unknown]

NARRATIVE: CASE EVENT DATE: 2018
